FAERS Safety Report 25828339 (Version 2)
Quarter: 2025Q4

REPORT INFORMATION
  Report Type: Report from Study
  Country: US (occurrence: US)
  Receive Date: 20250921
  Receipt Date: 20251013
  Transmission Date: 20260119
  Serious: Yes (Hospitalization, Other)
  Sender: ABBVIE
  Company Number: US-ABBVIE-6466443

PATIENT
  Age: 43 Year
  Sex: Female
  Weight: 48.53 kg

DRUGS (1)
  1. SKYRIZI [Suspect]
     Active Substance: RISANKIZUMAB-RZAA
     Indication: Colitis ulcerative
     Route: 058
     Dates: start: 20250109

REACTIONS (3)
  - Abdominal adhesions [Unknown]
  - Intestinal obstruction [Recovered/Resolved]
  - Gastrointestinal scarring [Unknown]

NARRATIVE: CASE EVENT DATE: 20250101
